FAERS Safety Report 6429631-4 (Version None)
Quarter: 2009Q4

REPORT INFORMATION
  Report Type: 
  Country: None (occurrence: None)
  Receive Date: 20091103
  Receipt Date: 20091019
  Transmission Date: 20100525
  Serious: Yes (Hospitalization)
  Sender: FDA-Public Use
  Company Number: 02100-JPN-05-0617

PATIENT
  Age: 68 Year
  Sex: Male

DRUGS (4)
  1. PLETAL [Suspect]
     Indication: CEREBRAL INFARCTION
     Dosage: 100 MG, BID ORAL
     Route: 048
     Dates: start: 20051122
  2. TENORMIN [Concomitant]
  3. CALBLOCK (AZELNIDIPINE) [Concomitant]
  4. LOSARTAN POTASSIUM [Concomitant]

REACTIONS (7)
  - C-REACTIVE PROTEIN INCREASED [None]
  - DIAPHRAGMATIC DISORDER [None]
  - HEPATIC FUNCTION ABNORMAL [None]
  - HICCUPS [None]
  - MALAISE [None]
  - NASOPHARYNGITIS [None]
  - WHITE BLOOD CELL COUNT INCREASED [None]
